FAERS Safety Report 19367749 (Version 1)
Quarter: 2021Q2

REPORT INFORMATION
  Report Type: Spontaneous
  Country: GB (occurrence: GB)
  Receive Date: 20210603
  Receipt Date: 20210603
  Transmission Date: 20210717
  Serious: Yes (Other)
  Sender: FDA-Public Use
  Company Number: GB-MYLANLABS-2021M1031076

PATIENT
  Sex: Female

DRUGS (2)
  1. ZOLPIDEM [Concomitant]
     Active Substance: ZOLPIDEM TARTRATE
     Indication: ILL-DEFINED DISORDER
     Dosage: UNK
  2. SERTRALINE [Suspect]
     Active Substance: SERTRALINE HYDROCHLORIDE
     Indication: DEPRESSION
     Dosage: 25 MILLIGRAM
     Route: 048
     Dates: start: 20180101, end: 20201201

REACTIONS (3)
  - Intrusive thoughts [Not Recovered/Not Resolved]
  - Sleep terror [Not Recovered/Not Resolved]
  - Flashback [Not Recovered/Not Resolved]
